FAERS Safety Report 12179796 (Version 1)
Quarter: 2016Q1

REPORT INFORMATION
  Report Type: Report from Study
  Country: US (occurrence: US)
  Receive Date: 20160315
  Receipt Date: 20160315
  Transmission Date: 20160526
  Serious: Yes (Other)
  Sender: FDA-Public Use
  Company Number: US-SUN PHARMACEUTICAL INDUSTRIES LTD-2016US-113007

PATIENT
  Age: 18 Year
  Sex: Female

DRUGS (2)
  1. TOPIRAMATE. [Suspect]
     Active Substance: TOPIRAMATE
     Indication: HEADACHE
     Dosage: 50 MG IN MORNING
     Route: 065
  2. TOPIRAMATE. [Suspect]
     Active Substance: TOPIRAMATE
     Indication: HEADACHE
     Dosage: 75 MG AT NIGHT
     Route: 065

REACTIONS (6)
  - Self-induced vomiting [Unknown]
  - Eating disorder [Unknown]
  - Orthostatic intolerance [Unknown]
  - Hypophagia [Unknown]
  - Oligomenorrhoea [Unknown]
  - Weight decreased [Unknown]
